FAERS Safety Report 9126455 (Version 1)
Quarter: 2013Q1

REPORT INFORMATION
  Report Type: Spontaneous
  Country: FI (occurrence: FI)
  Receive Date: 20130121
  Receipt Date: 20130121
  Transmission Date: 20140127
  Serious: Yes (Hospitalization, Disabling)
  Sender: FDA-Public Use
  Company Number: FI-BAXTER-2013BAX001900

PATIENT
  Age: 65 Year
  Sex: Male

DRUGS (8)
  1. HOLOXAN [Suspect]
     Indication: SARCOMA
     Route: 042
     Dates: start: 20120920, end: 20121101
  2. UROMITEXAN [Suspect]
     Indication: SARCOMA
     Route: 042
     Dates: start: 20120920, end: 20121101
  3. ADRIAMYCIN [Suspect]
     Indication: SARCOMA
     Route: 042
     Dates: start: 20120920, end: 20121101
  4. TEGRETOL [Concomitant]
     Indication: DEPRESSION
     Route: 048
     Dates: end: 20121115
  5. EMEND [Concomitant]
     Indication: NAUSEA
     Dosage: 125-80 MG
     Route: 048
     Dates: start: 20120920, end: 20121012
  6. CIPRALEX [Concomitant]
     Indication: DEPRESSION
     Route: 048
  7. OXYCONTIN [Concomitant]
     Indication: CANCER PAIN
     Dosage: 20+40 MG
     Route: 048
  8. EMCONCOR [Concomitant]
     Indication: HYPERTONIA
     Route: 048

REACTIONS (6)
  - Hypokalaemia [Unknown]
  - Dyspnoea [Unknown]
  - Encephalopathy [Recovered/Resolved]
  - Disorientation [Unknown]
  - Blood creatinine increased [None]
  - Drug effect decreased [None]
